FAERS Safety Report 6103764-4 (Version None)
Quarter: 2009Q1

REPORT INFORMATION
  Report Type: 
  Country: None (occurrence: None)
  Receive Date: 20090305
  Receipt Date: 20090303
  Transmission Date: 20090719
  Serious: Yes (Other)
  Sender: FDA-Public Use
  Company Number: CN-ASTRAZENECA-2009AP01637

PATIENT
  Age: 55 Year
  Sex: Female

DRUGS (2)
  1. IRESSA [Suspect]
     Indication: LUNG ADENOCARCINOMA
     Route: 048
     Dates: start: 20081210, end: 20090301
  2. ALIMTA [Concomitant]
     Dosage: 6 CYCLES
     Dates: start: 20080501, end: 20081110

REACTIONS (3)
  - CHEST X-RAY ABNORMAL [None]
  - HYPOXIA [None]
  - UPPER RESPIRATORY TRACT INFECTION [None]
